FAERS Safety Report 5035601-3 (Version None)
Quarter: 2006Q2

REPORT INFORMATION
  Report Type: 
  Country: None (occurrence: None)
  Receive Date: 20060627
  Receipt Date: 20040719
  Transmission Date: 20061013
  Serious: Yes (Other)
  Sender: FDA-Public Use
  Company Number: US-GLAXOSMITHKLINE-A0519693A

PATIENT
  Sex: Female

DRUGS (1)
  1. PAXIL CR [Suspect]
     Indication: GENERALISED ANXIETY DISORDER
     Route: 048
     Dates: start: 20020101

REACTIONS (7)
  - ABNORMAL BEHAVIOUR [None]
  - AGGRESSION [None]
  - DRUG WITHDRAWAL SYNDROME [None]
  - NAUSEA [None]
  - TREMOR [None]
  - VERTIGO [None]
  - VOMITING [None]
